FAERS Safety Report 5392838-1 (Version None)
Quarter: 2007Q3

REPORT INFORMATION
  Report Type: 
  Country: None (occurrence: None)
  Receive Date: 20070720
  Receipt Date: 20070710
  Transmission Date: 20080115
  Serious: Yes (Life-Threatening)
  Sender: FDA-Public Use
  Company Number: FR-PFIZER INC-2007056834

PATIENT
  Sex: Female
  Weight: 7 kg

DRUGS (5)
  1. ALDACTONE [Suspect]
     Indication: VARICES OESOPHAGEAL
  2. AETOXISCLEROL [Suspect]
     Indication: VARICES OESOPHAGEAL
     Dosage: TEXT:TDD:2 DF
     Route: 042
  3. PROPRANOLOL HYDROCHLORIDE [Concomitant]
  4. OMEPRAZOLE [Concomitant]
     Dosage: DAILY DOSE:10MG
     Route: 042
  5. TARGOCID [Concomitant]
     Dosage: DAILY DOSE:70MG

REACTIONS (2)
  - BRADYCARDIA [None]
  - CARDIAC ARREST [None]
